FAERS Safety Report 10330942 (Version 2)
Quarter: 2015Q1

REPORT INFORMATION
  Report Type: Spontaneous
  Country: US (occurrence: None)
  Receive Date: 20140718
  Receipt Date: 20150226
  Transmission Date: 20150720
  Serious: Yes (Disabling, Other)
  Sender: FDA-Public Use
  Company Number: 201407037

PATIENT
  Age: 56 Year
  Sex: Male

DRUGS (2)
  1. AXIRON [Suspect]
     Active Substance: TESTOSTERONE
     Dates: start: 2012, end: 2013
  2. TESTIM [Suspect]
     Active Substance: TESTOSTERONE
     Indication: BLOOD TESTOSTERONE DECREASED
     Dates: start: 200705, end: 2011

REACTIONS (7)
  - Impaired work ability [None]
  - Pain [None]
  - Cardiac operation [None]
  - Injury [None]
  - Road traffic accident [None]
  - Aneurysm [None]
  - Anxiety [None]
